FAERS Safety Report 5624729-2 (Version None)
Quarter: 2008Q1

REPORT INFORMATION
  Report Type: 
  Country: None (occurrence: None)
  Receive Date: 20080213
  Receipt Date: 20080205
  Transmission Date: 20080703
  Serious: Yes (Hospitalization)
  Sender: FDA-Public Use
  Company Number: FR-WYE-G01004408

PATIENT
  Age: 72 Year
  Sex: Male

DRUGS (2)
  1. GEMTUZUMAB OZOGAMICIN [Suspect]
     Indication: ACUTE MYELOID LEUKAEMIA
     Dosage: 6 MG/M2
     Route: 042
     Dates: start: 20070210, end: 20070210
  2. ARACYTINE [Suspect]
     Indication: ACUTE MYELOID LEUKAEMIA
     Dosage: UNKNOWN
     Route: 042
     Dates: start: 20070210, end: 20070217

REACTIONS (3)
  - HEPATITIS ACUTE [None]
  - PERITONEAL EFFUSION [None]
  - PLEURAL EFFUSION [None]
